FAERS Safety Report 25167199 (Version 3)
Quarter: 2025Q2

REPORT INFORMATION
  Report Type: Spontaneous
  Country: US (occurrence: US)
  Receive Date: 20250407
  Receipt Date: 20250421
  Transmission Date: 20250717
  Serious: Yes (Other)
  Sender: NOVARTIS
  Company Number: US-002147023-NVSC2025US053715

PATIENT
  Sex: Female

DRUGS (1)
  1. LEQVIO [Suspect]
     Active Substance: INCLISIRAN SODIUM
     Indication: Product used for unknown indication
     Route: 065
     Dates: start: 202410

REACTIONS (7)
  - Diabetes mellitus [Unknown]
  - Arthralgia [Unknown]
  - Tremor [Unknown]
  - Injection site erythema [Unknown]
  - Injection site pain [Unknown]
  - Grip strength decreased [Unknown]
  - Pain in extremity [Unknown]
